FAERS Safety Report 21212518 (Version 1)
Quarter: 2022Q3

REPORT INFORMATION
  Report Type: Spontaneous
  Country: CA (occurrence: CA)
  Receive Date: 20220815
  Receipt Date: 20220815
  Transmission Date: 20221026
  Serious: Yes (Hospitalization, Other)
  Sender: FDA-Public Use
  Company Number: CA-BoehringerIngelheim-2022-BI-186650

PATIENT
  Age: 74 Year
  Sex: Male

DRUGS (2)
  1. LINAGLIPTIN [Suspect]
     Active Substance: LINAGLIPTIN
     Indication: Type 2 diabetes mellitus
     Route: 048
  2. LANTUS [Concomitant]
     Active Substance: INSULIN GLARGINE
     Indication: Type 2 diabetes mellitus
     Route: 058

REACTIONS (4)
  - Cardiac failure congestive [Unknown]
  - Duodenal ulcer [Recovered/Resolved]
  - Dialysis [Recovering/Resolving]
  - Transcatheter aortic valve implantation [Recovered/Resolved]

NARRATIVE: CASE EVENT DATE: 20210801
